FAERS Safety Report 10920519 (Version 1)
Quarter: 2015Q1

REPORT INFORMATION
  Report Type: Report from Study
  Country: US (occurrence: US)
  Receive Date: 20150317
  Receipt Date: 20150317
  Transmission Date: 20150721
  Serious: Yes (Hospitalization)
  Sender: FDA-Public Use
  Company Number: PHHY2015US001478

PATIENT
  Age: 70 Year
  Sex: Female
  Weight: 67 kg

DRUGS (1)
  1. FARYDAK [Suspect]
     Active Substance: PANOBINOSTAT
     Indication: METASTATIC RENAL CELL CARCINOMA
     Dosage: 20 MG, BIW
     Route: 048
     Dates: start: 20080304, end: 20150119

REACTIONS (6)
  - Drug ineffective [Recovered/Resolved]
  - Gastrointestinal viral infection [Recovering/Resolving]
  - Lung infiltration [Recovered/Resolved]
  - Pancytopenia [Recovering/Resolving]
  - Thrombocytosis [Unknown]
  - Disease recurrence [Unknown]

NARRATIVE: CASE EVENT DATE: 20150104
